FAERS Safety Report 14256124 (Version 1)
Quarter: 2017Q4

REPORT INFORMATION
  Report Type: Spontaneous
  Country: AU (occurrence: AU)
  Receive Date: 20171206
  Receipt Date: 20171206
  Transmission Date: 20180321
  Serious: Yes (Other)
  Sender: FDA-Public Use
  Company Number: AU-TAKEDA-2017TUS022693

PATIENT
  Age: 27 Year
  Sex: Male
  Weight: 86 kg

DRUGS (4)
  1. URSODEOXYCHOLIC ACID [Concomitant]
     Active Substance: URSODIOL
     Dosage: 750 MG, BID
     Dates: start: 2012
  2. VORTIOXETINE. [Concomitant]
     Active Substance: VORTIOXETINE
     Dosage: 10 MG, QD
     Dates: start: 2016
  3. ENTYVIO [Suspect]
     Active Substance: VEDOLIZUMAB
     Indication: PRODUCT USED FOR UNKNOWN INDICATION
     Dosage: 300 MG, UNK
     Route: 065
     Dates: start: 20170714, end: 20171020
  4. MESALAZINE [Concomitant]
     Active Substance: MESALAMINE
     Dosage: 2 G, BID
     Route: 048
     Dates: start: 2012

REACTIONS (2)
  - Drug-induced liver injury [Recovering/Resolving]
  - Liver function test increased [Recovering/Resolving]

NARRATIVE: CASE EVENT DATE: 20170727
